FAERS Safety Report 4728116-0 (Version None)
Quarter: 2005Q3

REPORT INFORMATION
  Report Type: 
  Country: None (occurrence: None)
  Receive Date: 20050728
  Receipt Date: 20050728
  Transmission Date: 20060218
  Serious: Yes (Life-Threatening, Hospitalization, Disabling)
  Sender: FDA-Public Use
  Company Number: None

PATIENT
  Age: 37 Year
  Sex: Male
  Weight: 72.5755 kg

DRUGS (1)
  1. WELLBUTRIN XL [Suspect]
     Indication: DEPRESSION
     Dosage: 1 A DAY
     Dates: start: 20041117, end: 20050126

REACTIONS (8)
  - ANGER [None]
  - BALANCE DISORDER [None]
  - BIPOLAR DISORDER [None]
  - DYSARTHRIA [None]
  - LOSS OF EMPLOYMENT [None]
  - MANIA [None]
  - MEMORY IMPAIRMENT [None]
  - MENTAL DISORDER [None]
